FAERS Safety Report 7834397-7 (Version None)
Quarter: 2011Q4

REPORT INFORMATION
  Report Type: 
  Country: None (occurrence: None)
  Receive Date: 20111024
  Receipt Date: 20111018
  Transmission Date: 20120403
  Serious: Yes (Death)
  Sender: FDA-Public Use
  Company Number: PHHY2011JP92552

PATIENT
  Age: 68 Year
  Sex: Female

DRUGS (3)
  1. CYCLOSPORINE [Suspect]
     Indication: PUSTULAR PSORIASIS
     Dosage: 3 MG/KG/DAY
  2. CYCLOSPORINE [Suspect]
     Dosage: 0.5 MG/KG/DAY
  3. CYCLOSPORINE [Suspect]
     Dosage: 1 MG/KG/DAY

REACTIONS (4)
  - RASH PUSTULAR [None]
  - PYREXIA [None]
  - HEPATIC FAILURE [None]
  - ERYTHEMA [None]
